FAERS Safety Report 5491279-6 (Version None)
Quarter: 2007Q4

REPORT INFORMATION
  Report Type: 
  Country: None (occurrence: None)
  Receive Date: 20071017
  Receipt Date: 20071005
  Transmission Date: 20080405
  Serious: Yes (Death)
  Sender: FDA-Public Use
  Company Number: 2007-01725

PATIENT
  Age: 71 Year
  Sex: Male

DRUGS (13)
  1. VELCADE [Suspect]
     Indication: MULTIPLE MYELOMA
     Dosage: 2.00 MG,
     Dates: start: 20070126, end: 20070327
  2. DEXAMETHASONE TAB [Suspect]
     Indication: MULTIPLE MYELOMA
     Dosage: 20.00 MG, ORAL; 10.00 MG, ORAL
     Route: 048
     Dates: start: 20070124, end: 20070206
  3. DEXAMETHASONE TAB [Suspect]
     Indication: MULTIPLE MYELOMA
     Dosage: 20.00 MG, ORAL; 10.00 MG, ORAL
     Route: 048
     Dates: start: 20070227, end: 20070310
  4. OMEPRAL (OMEPRAZOLE) [Concomitant]
  5. GANATON (ITOPRIDE HYDROCHLORIDE) [Concomitant]
  6. DEPAS (ETIZOLAM) [Concomitant]
  7. NOVAMIN (PROCHLORPERAZINE) [Concomitant]
  8. GOSHAJINKIGAN (HERBAL EXTRACTS NOS) [Concomitant]
  9. BAKTAR (SULFAMETHOXAZOLE, TRIMETHOPRIM) [Concomitant]
  10. OXYCONTIN [Concomitant]
  11. PURSENNID (SENNA LEAF) [Concomitant]
  12. TIENAM (IMIPENEM, CILASTATIN) [Concomitant]
  13. ALENDRONATE SODIUM [Concomitant]

REACTIONS (19)
  - ALANINE AMINOTRANSFERASE INCREASED [None]
  - ASPARTATE AMINOTRANSFERASE INCREASED [None]
  - BLOOD CALCIUM DECREASED [None]
  - BLOOD POTASSIUM DECREASED [None]
  - BLOOD UREA INCREASED [None]
  - BLOOD URIC ACID INCREASED [None]
  - C-REACTIVE PROTEIN INCREASED [None]
  - HYPOTENSION [None]
  - LYMPHOPENIA [None]
  - MENINGITIS [None]
  - MONOCYTE COUNT DECREASED [None]
  - NEUTROPHIL COUNT INCREASED [None]
  - PLATELET COUNT DECREASED [None]
  - PNEUMONIA [None]
  - PROTEIN TOTAL DECREASED [None]
  - PYREXIA [None]
  - SEPSIS [None]
  - STAPHYLOCOCCAL INFECTION [None]
  - WHITE BLOOD CELL COUNT DECREASED [None]
